FAERS Safety Report 7585634-8 (Version None)
Quarter: 2011Q3

REPORT INFORMATION
  Report Type: 
  Country: None (occurrence: None)
  Receive Date: 20110701
  Receipt Date: 20110701
  Transmission Date: 20111222
  Serious: No
  Sender: FDA-Public Use
  Company Number: None

PATIENT
  Age: 75 Year
  Sex: Male
  Weight: 117 kg

DRUGS (1)
  1. SPIRIVA [Suspect]
     Indication: EMPHYSEMA
     Dosage: 1 CAPSULE
     Dates: start: 20110621, end: 20110630

REACTIONS (3)
  - MALAISE [None]
  - PULMONARY CONGESTION [None]
  - DYSPNOEA [None]
